FAERS Safety Report 13813585 (Version 6)
Quarter: 2018Q2

REPORT INFORMATION
  Report Type: Report from Study
  Country: CA (occurrence: CA)
  Receive Date: 20170731
  Receipt Date: 20180618
  Transmission Date: 20180711
  Serious: Yes (Other)
  Sender: FDA-Public Use
  Company Number: CA-BRISTOL-MYERS SQUIBB COMPANY-BMS-2017-064165

PATIENT
  Age: 44 Year
  Sex: Female

DRUGS (1)
  1. ABATACEPT [Suspect]
     Active Substance: ABATACEPT
     Indication: RHEUMATOID ARTHRITIS
     Dosage: 750 MG, Q4WK
     Route: 042
     Dates: start: 20170519, end: 201805

REACTIONS (22)
  - Sarcoidosis [Unknown]
  - Decreased appetite [Unknown]
  - Abdominal discomfort [Unknown]
  - Lymphoma [Unknown]
  - Fatigue [Unknown]
  - Lymphadenopathy [Unknown]
  - Syncope [Unknown]
  - Head injury [Unknown]
  - Bone disorder [Recovered/Resolved]
  - Hyperaesthesia [Unknown]
  - Haemorrhage [Unknown]
  - Fall [Unknown]
  - Weight decreased [Not Recovered/Not Resolved]
  - Swelling [Unknown]
  - Drug ineffective [Not Recovered/Not Resolved]
  - Musculoskeletal pain [Unknown]
  - Dysstasia [Unknown]
  - Joint swelling [Unknown]
  - Amnesia [Unknown]
  - Pharyngitis streptococcal [Unknown]
  - Limb injury [Unknown]
  - Influenza [Unknown]

NARRATIVE: CASE EVENT DATE: 20170519
